FAERS Safety Report 23839618 (Version 2)
Quarter: 2024Q2

REPORT INFORMATION
  Report Type: Spontaneous
  Country: KR (occurrence: KR)
  Receive Date: 20240510
  Receipt Date: 20240521
  Transmission Date: 20240715
  Serious: Yes (Other)
  Sender: FDA-Public Use
  Company Number: KR-NOVOPROD-1216104

PATIENT
  Age: 53 Year
  Sex: Female
  Weight: 66 kg

DRUGS (38)
  1. TRESIBA [Suspect]
     Active Substance: INSULIN DEGLUDEC
     Indication: Hyperglycaemia
     Dosage: 30 IU, QD (CUMULATIVE DOSE TO FIRST REACTION 270 IU. DURATION OF DRUG ADMINISTRATION IS 27 DAYS)
     Dates: start: 20211213, end: 20220108
  2. ALMAGATE [Suspect]
     Active Substance: ALMAGATE
     Indication: Abdominal pain upper
     Dosage: 15 ML, QD DURATION OF DRUG ADMINISTRATION IS 11 DAYS
     Dates: start: 20211221, end: 20211231
  3. ACYCLOVIR [Concomitant]
     Active Substance: ACYCLOVIR
     Indication: Antiviral prophylaxis
     Dosage: 660 MG, QDCUMULATIVE DOSE TO FIRST REACTION 8580 MG.DURATION OF ADMINISTRATION 27 DAYS
     Dates: start: 20211209, end: 20220104
  4. ACYCLOVIR [Concomitant]
     Active Substance: ACYCLOVIR
     Dosage: 800 MG, QD
     Dates: start: 20220105
  5. ALLOPURINOL [Concomitant]
     Active Substance: ALLOPURINOL
     Indication: Prophylaxis
     Dosage: 300 MG, QDCUMULATIVE DOSE TO FIRST REACTION 1500 MGDURATION OF ADMINISTRATION5 DAY
     Dates: start: 20211210, end: 20211214
  6. BUSULFAN [Concomitant]
     Active Substance: BUSULFAN
     Indication: Myelodysplastic syndrome
     Dosage: 212.8 MG, QDCUMULATIVE DOSE TO FIRST REACTION 638.4 MG.DURATION OF ADMINISTRATION 3 DAYS
     Dates: start: 20211212, end: 20211214
  7. FLUDARABINE PHOSPHATE [Concomitant]
     Active Substance: FLUDARABINE PHOSPHATE
     Indication: Myelodysplastic syndrome
     Dosage: 51.6 MG, QDCUMULATIVE DOSE TO FIRST REACTION 258 MG.DURATION OF ADMINISTRATION 5 DAYS
     Dates: start: 20211210, end: 20211214
  8. CYCLOPHOSPHAMIDE [Concomitant]
     Active Substance: CYCLOPHOSPHAMIDE
     Indication: Myelodysplastic syndrome
     Dosage: 3325 MG, QDCUMULATIVE DOSE TO FIRST REACTION 3325 MG.DURATION OF ADMINISTRATION 1 DAY
     Dates: start: 20211219, end: 20211219
  9. METHOTREXATE [Concomitant]
     Active Substance: METHOTREXATE
     Indication: Myelodysplastic syndrome
     Dosage: 8.6 MG, QD
     Dates: start: 20211220
  10. METHOTREXATE [Concomitant]
     Active Substance: METHOTREXATE
     Dosage: 8.6 MG, QD
     Dates: start: 20211225
  11. METHOTREXATE [Concomitant]
     Active Substance: METHOTREXATE
     Dosage: 8.6 MG, QD
     Dates: start: 20211222
  12. LEUCOVORIN CALCIUM [Concomitant]
     Active Substance: LEUCOVORIN CALCIUM
     Dosage: 18 MG, QD
     Dates: start: 20211225
  13. LEUCOVORIN CALCIUM [Concomitant]
     Active Substance: LEUCOVORIN CALCIUM
     Indication: Myelodysplastic syndrome
     Dosage: 18 MG, QD
     Dates: start: 20211220
  14. LEUCOVORIN CALCIUM [Concomitant]
     Active Substance: LEUCOVORIN CALCIUM
     Dosage: 18 MG, QD
     Dates: start: 20211222
  15. MAGNESIUM LACTATE\PYRIDOXINE HYDROCHLORIDE [Concomitant]
     Active Substance: MAGNESIUM LACTATE\PYRIDOXINE HYDROCHLORIDE
     Indication: Prophylaxis
     Dosage: 1410 MG, QD
     Dates: start: 20220113
  16. URSODIOL [Concomitant]
     Active Substance: URSODIOL
     Indication: Prophylaxis
     Dosage: 300 MG, QDCUMULATIVE DOSE TO FIRST REACTION 2400 MG.DURATION OF DRUG ADMINISTRATION 8 DAYS
     Dates: start: 20211208, end: 20211215
  17. FOLIC ACID [Concomitant]
     Active Substance: FOLIC ACID
     Indication: Anaemia prophylaxis
     Dosage: 1 MG, QDCUMULATIVE DOSE TO FIRST REACTION 7 MG.DURATION OF DRUG ADMINISTRATION 7 DAYS
     Dates: start: 20211208, end: 20211214
  18. TACROLIMUS [Concomitant]
     Active Substance: TACROLIMUS
     Indication: Prophylaxis against graft versus host disease
     Dosage: 1.98 MG, QDCUMULATIVE DOSE TO FIRST REACTION 3.96 MG.DURATION OF DRUG ADMINISTRATION 4 DAYS
     Dates: start: 20211220, end: 20211223
  19. TRANEXAMIC ACID [Concomitant]
     Active Substance: TRANEXAMIC ACID
     Dosage: 1000 MG, QD
     Dates: start: 20211209, end: 20211209
  20. TRANEXAMIC ACID [Concomitant]
     Active Substance: TRANEXAMIC ACID
     Dosage: 500 MG, QD
     Dates: start: 20211208
  21. TRANEXAMIC ACID [Concomitant]
     Active Substance: TRANEXAMIC ACID
     Indication: Aplastic anaemia
     Dosage: 1500 MG, QD
     Dates: start: 20211130, end: 20211207
  22. LORAZEPAM [Concomitant]
     Active Substance: LORAZEPAM
     Indication: Nausea
     Dosage: 0.5 MG, QDCUMULATIVE DOSE TO FIRST REACTION 4 MG.DURATION OF DRUG ADMINISTRATION 13 DAYS
     Dates: start: 20211214, end: 20211226
  23. RAMOSETRON HYDROCHLORIDE [Concomitant]
     Active Substance: RAMOSETRON HYDROCHLORIDE
     Indication: Nausea
     Dosage: 0.3 MG, QDCUMULATIVE DOSE TO FIRST REACTION 1.5 MG.DURATION OF DRUG ADMINISTRATION 5 DAYS
     Dates: start: 20211210, end: 20211214
  24. MOSAPRIDE CITRATE DIHYDRATE [Concomitant]
     Active Substance: MOSAPRIDE CITRATE DIHYDRATE
     Indication: Dyspepsia
     Dosage: 15 MG, QDCUMULATIVE DOSE TO FIRST REACTION 135 MG.DURATION OF DRUG ADMINISTRATION 22 DAYS
     Dates: start: 20211213, end: 20220103
  25. TRIMEBUTINE MALEATE [Concomitant]
     Active Substance: TRIMEBUTINE MALEATE
     Indication: Dyspepsia
     Dosage: 300 MG, QDCUMULATIVE DOSE TO FIRST REACTION 1200 MG.DURATION OF DRUG ADMINISTRATION 18 DAYS
     Dates: start: 20211218, end: 20220104
  26. CEFEPIME HYDROCHLORIDE [Concomitant]
     Active Substance: CEFEPIME HYDROCHLORIDE
     Indication: Pyrexia
     Dosage: 4 G, QD CUMULATIVE DOSE TO FIRST REACTION 32 G.DURATION OF DRUG ADMINISTRATION 8 DAYS
     Dates: start: 20211210, end: 20211217
  27. FUROSEMIDE [Concomitant]
     Active Substance: FUROSEMIDE
     Indication: Prophylaxis
     Dosage: 20 MG, QD CUMULATIVE DOSE TO FIRST REACTION 100 MG.DURATION OF DRUG ADMINISTRATION 5 DAYS
     Dates: start: 20211210, end: 20211214
  28. MESNA [Concomitant]
     Active Substance: MESNA
     Indication: Myelodysplastic syndrome
     Dosage: 3325 MG, QD CUMULATIVE DOSE TO FIRST REACTION 3325 MG.DURATION OF DRUG ADMINISTRATION 1 DAY
     Dates: start: 20211219, end: 20211219
  29. PANTOPRAZOLE SODIUM [Concomitant]
     Active Substance: PANTOPRAZOLE SODIUM
     Indication: Gastrointestinal disorder prophylaxis
     Dosage: 40 MG, QD CUMULATIVE DOSE TO FIRST REACTION 240 MG.DURATION OF DRUG ADMINISTRATION 19 DAYS
     Dates: start: 20211216, end: 20220103
  30. ORNITHINE ASPARTATE [Concomitant]
     Active Substance: ORNITHINE ASPARTATE
     Indication: Hepatic enzyme increased
     Dosage: 2000 MG, QD FIRST DOSE REACTION 12000 MG.DURATION OF DRUG ADMINISTRATION 23 DAYS
     Dates: start: 20211216, end: 20220107
  31. TRAMADOL HYDROCHLORIDE [Concomitant]
     Active Substance: TRAMADOL HYDROCHLORIDE
     Indication: Catheter site pain
     Dosage: 50 MG, QD
     Dates: start: 20211219
  32. TRAMADOL HYDROCHLORIDE [Concomitant]
     Active Substance: TRAMADOL HYDROCHLORIDE
     Indication: Headache
     Dosage: 50 MG, QD
     Dates: start: 20211209
  33. TRAMADOL HYDROCHLORIDE [Concomitant]
     Active Substance: TRAMADOL HYDROCHLORIDE
     Indication: Pyrexia
     Dosage: 50 MG, QD
     Dates: start: 20211210, end: 20211212
  34. ACETAMINOPHEN [Concomitant]
     Active Substance: ACETAMINOPHEN
     Indication: Pyrexia
     Dosage: 650 MG, QD FIRST DOSE REACTION 650 MG.DURATION OF DRUG ADMINISTRATION 1 DAY
     Dates: start: 20211210, end: 20211210
  35. PHENYTOIN [Concomitant]
     Active Substance: PHENYTOIN
     Indication: Myelodysplastic syndrome
     Dosage: 300 MG, QD FIRST DOSE REACTION 1200 MG.DURATION OF DRUG ADMINISTRATION 4 DAYS
     Dates: start: 20211211, end: 20211214
  36. METHYLPREDNISOLONE SODIUM SUCCINATE [Concomitant]
     Active Substance: METHYLPREDNISOLONE SODIUM SUCCINATE
     Indication: Myelodysplastic syndrome
     Dosage: 125 MG, QD
     Dates: start: 20211210, end: 20211211
  37. METHYLPREDNISOLONE SODIUM SUCCINATE [Concomitant]
     Active Substance: METHYLPREDNISOLONE SODIUM SUCCINATE
     Dosage: 125 MG, QD
     Dates: start: 20211216
  38. METOCLOPRAMIDE HYDROCHLORIDE [Concomitant]
     Active Substance: METOCLOPRAMIDE HYDROCHLORIDE
     Indication: Nausea
     Dosage: 10 G, QD CUMULATIVE DOSE TO FIRST REACTION 90 MG.DURATION OF DRUG ADMINISTRATION 9 DAYS
     Dates: start: 20211210, end: 20211218

REACTIONS (11)
  - Graft versus host disease in gastrointestinal tract [Recovered/Resolved]
  - Burning sensation [Recovered/Resolved]
  - Chest pain [Recovered/Resolved]
  - Abdominal pain upper [Recovered/Resolved]
  - Pyrexia [Recovered/Resolved]
  - Insomnia [Recovered/Resolved]
  - Pain [Recovered/Resolved]
  - Productive cough [Recovered/Resolved]
  - Catheter site vesicles [Recovered/Resolved]
  - Constipation [Recovered/Resolved]
  - Hypoglycaemia [Recovered/Resolved]

NARRATIVE: CASE EVENT DATE: 20211221
